FAERS Safety Report 12802225 (Version 1)
Quarter: 2016Q4

REPORT INFORMATION
  Report Type: Spontaneous
  Country: US (occurrence: US)
  Receive Date: 20161003
  Receipt Date: 20161003
  Transmission Date: 20170207
  Serious: No
  Sender: FDA-Public Use
  Company Number: US-JAZZ-2016-US-012344

PATIENT
  Sex: Female

DRUGS (56)
  1. XYREM [Suspect]
     Active Substance: SODIUM OXYBATE
     Indication: CHRONIC FATIGUE SYNDROME
     Dosage: 1.5 G, BID
     Route: 048
     Dates: start: 200504, end: 200506
  2. XYREM [Suspect]
     Active Substance: SODIUM OXYBATE
     Dosage: 4.5 G, BID
     Route: 048
     Dates: start: 200812
  3. METAMUCIL [Concomitant]
     Active Substance: PLANTAGO SEED
  4. MIRALAX [Concomitant]
     Active Substance: POLYETHYLENE GLYCOL 3350
  5. OMEGA ESSENTIALS [Concomitant]
     Active Substance: DOCONEXENT\ ICOSAPENT\ FISH OIL\ OMEGA-3 FATTY ACIDS
  6. UBIQUINOL [Concomitant]
     Active Substance: UBIQUINOL
  7. PROGESTERONE. [Concomitant]
     Active Substance: PROGESTERONE
  8. PAU D^ARCO [Concomitant]
  9. THYROID [Concomitant]
     Active Substance: LEVOTHYROXINE\LIOTHYRONINE
  10. VITAMIN C [Concomitant]
     Active Substance: ASCORBIC ACID
  11. XYREM [Suspect]
     Active Substance: SODIUM OXYBATE
     Dosage: 4.5 G, BID
     Route: 048
     Dates: start: 201009, end: 201602
  12. ECHINACEA [Concomitant]
     Active Substance: ECHINACEA, UNSPECIFIED
  13. MYRBETRIQ [Concomitant]
     Active Substance: MIRABEGRON
  14. STOOL SOFTENER (DOCUSATE CALCIUM) [Concomitant]
     Active Substance: DOCUSATE CALCIUM
  15. B COMPLETE [Concomitant]
  16. MULTIVITAMINS WITH IRON [Concomitant]
     Active Substance: IRON\VITAMINS
  17. VALTREX [Concomitant]
     Active Substance: VALACYCLOVIR HYDROCHLORIDE
  18. XYREM [Suspect]
     Active Substance: SODIUM OXYBATE
     Dosage: 3.75 G, BID
     Route: 048
     Dates: start: 201602
  19. STRONTIUM CHLORIDE [Concomitant]
     Active Substance: STRONTIUM CHLORIDE
  20. FLECAINIDE ACETATE. [Concomitant]
     Active Substance: FLECAINIDE ACETATE
  21. VITAMIN K2 [Concomitant]
     Active Substance: MENAQUINONE 6
  22. LUTEIN-ZEAXANTHIN [Concomitant]
  23. ASPIRIN. [Concomitant]
     Active Substance: ASPIRIN
  24. LUTEIN [Concomitant]
     Active Substance: LUTEIN
  25. VITAMIN B12 [Concomitant]
     Active Substance: CYANOCOBALAMIN
  26. CETIRIZINE HCL [Concomitant]
     Active Substance: CETIRIZINE HYDROCHLORIDE
  27. PANCREATIN [Concomitant]
     Active Substance: PANCRELIPASE
  28. HYDROCORTISONE. [Concomitant]
     Active Substance: HYDROCORTISONE
  29. BONITA [Concomitant]
  30. CRANBERRY. [Concomitant]
     Active Substance: CRANBERRY
  31. GARLIC. [Concomitant]
     Active Substance: GARLIC
  32. VITAMIN D3 [Concomitant]
     Active Substance: CHOLECALCIFEROL
  33. ESTRACE [Concomitant]
     Active Substance: ESTRADIOL
  34. XYREM [Suspect]
     Active Substance: SODIUM OXYBATE
     Dosage: 4.5 G, BID
     Route: 048
     Dates: start: 200911
  35. FOLIC ACID. [Concomitant]
     Active Substance: FOLIC ACID
  36. CURCUMIN [Concomitant]
     Active Substance: CURCUMIN
  37. MAGNESIUM CITRATE. [Concomitant]
     Active Substance: MAGNESIUM CITRATE
  38. SEROQUEL [Concomitant]
     Active Substance: QUETIAPINE FUMARATE
  39. CALCIUM +D [Concomitant]
     Active Substance: CALCIUM\VITAMIN D
  40. D-RIBOSE [Concomitant]
     Active Substance: DIETARY SUPPLEMENT
  41. PROBIOTIC ACIDOPHILUS [Concomitant]
     Active Substance: LACTOBACILLUS ACIDOPHILUS
  42. XYREM [Suspect]
     Active Substance: SODIUM OXYBATE
     Dosage: 4.5 G, BID
     Route: 048
     Dates: start: 200506
  43. RESVERATROLIS [Concomitant]
  44. DHEA [Concomitant]
     Active Substance: PRASTERONE
  45. FLUTICASONE PROPIONATE. [Concomitant]
     Active Substance: FLUTICASONE PROPIONATE
  46. COENZYME Q10 [Concomitant]
     Active Substance: UBIDECARENONE
  47. NALTREXONE HCL [Concomitant]
     Active Substance: NALTREXONE HYDROCHLORIDE
  48. CALCIUM MAGNESIUM [Concomitant]
     Active Substance: CALCIUM\MAGNESIUM
  49. METAMUCIL CLEAR + NATURAL [Concomitant]
  50. RESTASIS [Concomitant]
     Active Substance: CYCLOSPORINE
  51. IODINE. [Concomitant]
     Active Substance: IODINE
  52. VINPOCETINE [Concomitant]
     Active Substance: VINPOCETINE
  53. CALCIUM ASCORBATE [Concomitant]
     Active Substance: CALCIUM ASCORBATE
  54. XARELTO [Concomitant]
     Active Substance: RIVAROXABAN
  55. FISH OIL [Concomitant]
     Active Substance: FISH OIL
  56. SENNALAX-S [Concomitant]
     Active Substance: DOCUSATE SODIUM\SENNOSIDES

REACTIONS (3)
  - Alopecia [Not Recovered/Not Resolved]
  - Oropharyngeal pain [Unknown]
  - Constipation [Unknown]
